FAERS Safety Report 9444888 (Version 1)
Quarter: 2013Q3

REPORT INFORMATION
  Report Type: Spontaneous
  Country: US (occurrence: None)
  Receive Date: 20130802
  Receipt Date: 20130802
  Transmission Date: 20140515
  Serious: Yes (Hospitalization)
  Sender: FDA-Public Use
  Company Number: SYM-2013-07524

PATIENT
  Age: 73 Year
  Sex: Male

DRUGS (1)
  1. XENAZINE [Suspect]
     Indication: CHOREA
     Route: 048
     Dates: start: 20111003

REACTIONS (2)
  - Cardiac failure congestive [None]
  - Gastric cancer [None]
